FAERS Safety Report 8570682-1 (Version None)
Quarter: 2012Q3

REPORT INFORMATION
  Report Type: 
  Country: None (occurrence: None)
  Receive Date: 20120805
  Receipt Date: 20120627
  Transmission Date: 20120928
  Serious: No
  Sender: FDA-Public Use
  Company Number: US-009507513-2012SP036865

PATIENT

DRUGS (1)
  1. CLARITIN-D [Suspect]
     Indication: HYPERSENSITIVITY
     Dosage: 5 MG, ONCE
     Route: 048

REACTIONS (1)
  - INSOMNIA [None]
